FAERS Safety Report 5939535-9 (Version None)
Quarter: 2008Q4

REPORT INFORMATION
  Report Type: 
  Country: None (occurrence: None)
  Receive Date: 20081030
  Receipt Date: 20081023
  Transmission Date: 20090506
  Serious: Yes (Hospitalization)
  Sender: FDA-Public Use
  Company Number: 1000001438

PATIENT
  Age: 77 Year
  Sex: Male

DRUGS (4)
  1. NAMENDA [Suspect]
     Indication: DEMENTIA ALZHEIMER'S TYPE
     Dosage: 20 MG (10 MG, 2 IN 1 D), ORAL
     Route: 048
     Dates: start: 20071001
  2. ARICEPT [Concomitant]
  3. BLOOD PRESSURE MEDICATION (NOS) [Concomitant]
  4. INSULATARD NPH HUMAN [Concomitant]

REACTIONS (8)
  - BLOOD GLUCOSE INCREASED [None]
  - DECUBITUS ULCER [None]
  - FALL [None]
  - INCORRECT DOSE ADMINISTERED [None]
  - NOSOCOMIAL INFECTION [None]
  - OVERDOSE [None]
  - PNEUMONIA [None]
  - STAPHYLOCOCCAL INFECTION [None]
